FAERS Safety Report 10027642 (Version 1)
Quarter: 2014Q1

REPORT INFORMATION
  Report Type: Report from Study
  Country: US (occurrence: US)
  Receive Date: 20140321
  Receipt Date: 20140321
  Transmission Date: 20141002
  Serious: Yes (Hospitalization, Other)
  Sender: FDA-Public Use
  Company Number: US-JNJFOC-20140309306

PATIENT
  Sex: Female
  Weight: 61.24 kg

DRUGS (7)
  1. REMICADE [Suspect]
     Indication: ARTHRITIS
     Route: 042
     Dates: start: 201108, end: 201305
  2. REMICADE [Suspect]
     Indication: CROHN^S DISEASE
     Route: 042
     Dates: start: 201108, end: 201305
  3. PREMARIN [Concomitant]
     Indication: MENOPAUSE
     Route: 048
     Dates: start: 2004
  4. PLAQUENIL [Concomitant]
     Indication: ARTHRITIS
     Route: 048
     Dates: start: 2010
  5. METHOTREXATE [Concomitant]
     Indication: ARTHRITIS
     Dosage: 1 CC WEEKLY
     Route: 058
     Dates: start: 2010, end: 201305
  6. METHOTREXATE [Concomitant]
     Indication: CROHN^S DISEASE
     Dosage: 1 CC WEEKLY
     Route: 058
     Dates: start: 2010, end: 201305
  7. OXYCODONE [Concomitant]
     Indication: PAIN
     Dosage: 2-3 TIMES A DAY
     Route: 048
     Dates: start: 2012, end: 2013

REACTIONS (4)
  - Hypertension [Not Recovered/Not Resolved]
  - Liver abscess [Recovered/Resolved]
  - Nocardiosis [Recovered/Resolved]
  - Arthritis [Recovered/Resolved]
